FAERS Safety Report 9421805 (Version 3)
Quarter: 2013Q4

REPORT INFORMATION
  Report Type: Spontaneous
  Country: BR (occurrence: BR)
  Receive Date: 20130726
  Receipt Date: 20131023
  Transmission Date: 20140711
  Serious: Yes (Other)
  Sender: FDA-Public Use
  Company Number: BR-BAYER-2013-087471

PATIENT
  Sex: Female

DRUGS (1)
  1. MIRENA [Suspect]
     Dosage: 20 ?G, CONT
     Route: 015
     Dates: start: 201203, end: 20121214

REACTIONS (7)
  - Ovarian necrosis [None]
  - Oophoritis [None]
  - Device dislocation [None]
  - Discomfort [None]
  - Menstruation irregular [None]
  - Abdominal pain lower [None]
  - Patient-device incompatibility [None]
